FAERS Safety Report 17636337 (Version 1)
Quarter: 2020Q2

REPORT INFORMATION
  Report Type: Spontaneous
  Country: CA (occurrence: CA)
  Receive Date: 20200407
  Receipt Date: 20200407
  Transmission Date: 20200713
  Serious: Yes (Death)
  Sender: FDA-Public Use
  Company Number: NVSC2020CA093997

PATIENT
  Age: 70 Year
  Sex: Female
  Weight: 52 kg

DRUGS (6)
  1. SANDOZ CIPROFLOXACIN [Suspect]
     Active Substance: CIPROFLOXACIN
     Indication: PSEUDOMONAS BRONCHITIS
     Dosage: 500 MG, BID
     Route: 048
  2. CIPROFLOXACINE ACTAVIS [Suspect]
     Active Substance: CIPROFLOXACIN HYDROCHLORIDE
     Indication: PSEUDOMONAS BRONCHITIS
     Dosage: 750 MG, BID
     Route: 048
  3. SPIRONOLACTONE. [Concomitant]
     Active Substance: SPIRONOLACTONE
     Indication: PRODUCT USED FOR UNKNOWN INDICATION
     Dosage: UNK
     Route: 065
  4. WARFARIN [Concomitant]
     Active Substance: WARFARIN
     Indication: PRODUCT USED FOR UNKNOWN INDICATION
     Dosage: UNK
     Route: 065
  5. METOPROLOL. [Concomitant]
     Active Substance: METOPROLOL
     Indication: PRODUCT USED FOR UNKNOWN INDICATION
     Dosage: UNK
     Route: 065
  6. RAMIPRIL. [Concomitant]
     Active Substance: RAMIPRIL
     Indication: PRODUCT USED FOR UNKNOWN INDICATION
     Dosage: UNK
     Route: 065

REACTIONS (1)
  - Hepatitis acute [Fatal]
